FAERS Safety Report 4492777-4 (Version None)
Quarter: 2004Q4

REPORT INFORMATION
  Report Type: 
  Country: None (occurrence: None)
  Receive Date: 20041029
  Receipt Date: 20041018
  Transmission Date: 20050328
  Serious: Yes (Other)
  Sender: FDA-Public Use
  Company Number: SUSI-2004-00673

PATIENT
  Age: 13 Year
  Sex: Female
  Weight: 40.8 kg

DRUGS (2)
  1. ADDERALL XR 20 [Suspect]
     Indication: ATTENTION DEFICIT/HYPERACTIVITY DISORDER
     Dosage: 110 MG DAILY
     Dates: start: 20010101
  2. EFFEXOR XR [Concomitant]

REACTIONS (3)
  - HERPES ZOSTER [None]
  - INITIAL INSOMNIA [None]
  - OVERDOSE [None]
